FAERS Safety Report 9382805 (Version 2)
Quarter: 2013Q3

REPORT INFORMATION
  Report Type: Spontaneous
  Country: MX (occurrence: MX)
  Receive Date: 20130703
  Receipt Date: 20130709
  Transmission Date: 20140515
  Serious: Yes (Death, Hospitalization)
  Sender: FDA-Public Use
  Company Number: MX-B.I. PHARMACEUTICALS,INC./RIDGEFIELD-2013-MX-00219MX

PATIENT
  Age: 70 Year
  Sex: Female

DRUGS (7)
  1. PRADAXAR [Suspect]
     Indication: CEREBROVASCULAR ACCIDENT PROPHYLAXIS
     Dosage: 300 MG
     Route: 048
     Dates: start: 201206, end: 201206
  2. PRADAXAR [Suspect]
     Indication: ATRIAL FIBRILLATION
  3. ENOXAPARINA [Suspect]
     Indication: ATRIAL FIBRILLATION
     Dates: start: 2012
  4. ENOXAPARINA [Suspect]
     Indication: PERIPHERAL VASCULAR DISORDER
  5. HUMALOG [Concomitant]
     Indication: TYPE 2 DIABETES MELLITUS
     Route: 058
  6. METFORMINE [Concomitant]
     Indication: TYPE 2 DIABETES MELLITUS
     Route: 048
  7. SITAGLIPTIN [Concomitant]
     Indication: TYPE 2 DIABETES MELLITUS
     Route: 048

REACTIONS (3)
  - Cerebral haemorrhage [Fatal]
  - Drug interaction [Unknown]
  - Pneumonia [Unknown]
